FAERS Safety Report 7765240-2 (Version None)
Quarter: 2011Q3

REPORT INFORMATION
  Report Type: 
  Country: None (occurrence: None)
  Receive Date: 20110921
  Receipt Date: 20110913
  Transmission Date: 20111222
  Serious: Yes (Death)
  Sender: FDA-Public Use
  Company Number: JP-GLAXOSMITHKLINE-B0415430A

PATIENT
  Sex: Female
  Weight: 14.6 kg

DRUGS (19)
  1. FUNGUARD [Concomitant]
     Route: 042
     Dates: start: 20030310, end: 20030403
  2. DIFLUCAN [Concomitant]
     Route: 042
     Dates: start: 20030221, end: 20030302
  3. VICCLOX [Concomitant]
     Route: 042
     Dates: start: 20030228, end: 20030307
  4. ANTITHROMBIN III [Concomitant]
     Route: 042
     Dates: start: 20030304, end: 20030304
  5. CEFMETAZON [Concomitant]
     Dates: start: 20030328, end: 20030403
  6. FLUMARIN [Concomitant]
     Route: 042
     Dates: start: 20030221, end: 20030227
  7. ANTITHROMBIN III [Concomitant]
     Route: 042
     Dates: start: 20030311, end: 20030311
  8. THIOTEPA [Suspect]
     Indication: STEM CELL TRANSPLANT
     Dosage: 200MGM2 PER DAY
     Route: 065
     Dates: start: 20030219, end: 20030220
  9. THIOTEPA [Suspect]
     Dosage: 200MGM2 PER DAY
     Dates: start: 20030226, end: 20030227
  10. GRAN [Concomitant]
     Dates: start: 20030304, end: 20030318
  11. IMMUNE GLOBULIN INTRAVENOUS (HUMAN) [Concomitant]
     Route: 042
     Dates: start: 20030228, end: 20030302
  12. CEFOPERAZONE SODIUM [Concomitant]
     Route: 042
     Dates: start: 20030305, end: 20030309
  13. ALKERAN [Suspect]
     Indication: STEM CELL TRANSPLANT
     Dosage: 70MGM2 PER DAY
     Route: 042
     Dates: start: 20030219, end: 20030220
  14. ADENOSINE [Concomitant]
     Route: 042
     Dates: start: 20030318, end: 20030324
  15. FOSMICIN S [Concomitant]
     Route: 042
     Dates: start: 20030302, end: 20030305
  16. CARBENIN [Concomitant]
     Route: 042
     Dates: start: 20030302, end: 20030305
  17. AZACTAM [Concomitant]
     Dates: start: 20030318, end: 20030328
  18. ALKERAN [Suspect]
     Dosage: 70MGM2 PER DAY
     Route: 042
     Dates: start: 20030226, end: 20030227
  19. DIFLUCAN [Concomitant]
     Route: 042
     Dates: start: 20030328, end: 20030403

REACTIONS (2)
  - SEPTIC SHOCK [None]
  - PNEUMONIA [None]
